FAERS Safety Report 7492421-8 (Version None)
Quarter: 2011Q2

REPORT INFORMATION
  Report Type: 
  Country: None (occurrence: None)
  Receive Date: 20110519
  Receipt Date: 20110511
  Transmission Date: 20111010
  Serious: Yes (Death, Hospitalization)
  Sender: FDA-Public Use
  Company Number: DE-CELGENEUS-062-21880-09080366

PATIENT
  Age: 57 Year
  Sex: Male
  Weight: 99 kg

DRUGS (3)
  1. IBANDRONATE SODIUM [Concomitant]
     Route: 065
     Dates: start: 20051101
  2. DEXAMETHASONE [Concomitant]
     Route: 065
     Dates: start: 20080901, end: 20081201
  3. REVLIMID [Suspect]
     Indication: MULTIPLE MYELOMA
     Dosage: 25 MILLIGRAM
     Route: 048
     Dates: start: 20080918, end: 20081207

REACTIONS (3)
  - DEATH [None]
  - SEPSIS [None]
  - MULTIPLE MYELOMA [None]
